FAERS Safety Report 19177340 (Version 1)
Quarter: 2021Q2

REPORT INFORMATION
  Report Type: Spontaneous
  Country: US (occurrence: US)
  Receive Date: 20210425
  Receipt Date: 20210425
  Transmission Date: 20210717
  Serious: No
  Sender: FDA-Public Use
  Company Number: US-GLAXOSMITHKLINE-USCH2021AMR020785

PATIENT
  Sex: Male
  Weight: 99.79 kg

DRUGS (4)
  1. TYLENOL [Suspect]
     Active Substance: ACETAMINOPHEN
     Indication: VACCINATION COMPLICATION
     Dosage: UNK, DURING THE DAY
  2. IBUPROFEN. [Suspect]
     Active Substance: IBUPROFEN
     Indication: VACCINATION COMPLICATION
     Dosage: 200 MG, TOOK 2 BY MOUTH AS NEEDED, AT NIGHT
  3. COVID19 VACCINE [Concomitant]
     Indication: COVID-19 PROPHYLAXIS
     Dosage: UNK, LEFT ARM
     Route: 042
     Dates: start: 20210122
  4. COVID19 VACCINE [Concomitant]
     Dosage: UNK, LEFT ARM
     Route: 042
     Dates: start: 20210216

REACTIONS (4)
  - Abdominal pain upper [Unknown]
  - Drug ineffective for unapproved indication [Unknown]
  - Intentional product misuse [Unknown]
  - Product use issue [Unknown]
